FAERS Safety Report 25690356 (Version 1)
Quarter: 2025Q3

REPORT INFORMATION
  Report Type: Spontaneous
  Country: US (occurrence: None)
  Receive Date: 20250815
  Receipt Date: 20250815
  Transmission Date: 20251020
  Serious: Yes (Hospitalization, Other)
  Sender: FDA-CTU
  Company Number: None

PATIENT
  Age: 76 Year
  Sex: Male

DRUGS (9)
  1. TACROLIMUS [Suspect]
     Active Substance: TACROLIMUS
     Indication: Renal transplant
     Dosage: 1.5 MG DAILY ORAL
     Route: 048
  2. Allopurinol 100mg Tablets [Concomitant]
  3. B-D Ultrafine Pen Ndl 32Gx6MM 100s [Concomitant]
  4. Lantus Solostar Pen Inj 3mL [Concomitant]
  5. Metoprolol ER Succinate 50mg Tablets [Concomitant]
  6. Multivitamin Tablets [Concomitant]
  7. MYCOPHENOLIC ACID [Concomitant]
     Active Substance: MYCOPHENOLIC ACID
  8. TACROLIMUS [Concomitant]
     Active Substance: TACROLIMUS
  9. TACROLIMUS [Concomitant]
     Active Substance: TACROLIMUS

REACTIONS (1)
  - Herpes zoster [None]

NARRATIVE: CASE EVENT DATE: 20250803
